FAERS Safety Report 5134195-1 (Version None)
Quarter: 2006Q4

REPORT INFORMATION
  Report Type: 
  Country: None (occurrence: None)
  Receive Date: 20061019
  Receipt Date: 20061003
  Transmission Date: 20070319
  Serious: Yes (Other)
  Sender: FDA-Public Use
  Company Number: GB200609003009

PATIENT
  Age: 36 Year
  Sex: Female

DRUGS (2)
  1. ZYPREXA [Suspect]
     Indication: MAJOR DEPRESSION
     Dosage: 20 MG, DAILY (1/D),
  2. VENLAFAXINE HCL [Concomitant]

REACTIONS (2)
  - ABORTION SPONTANEOUS [None]
  - DRUG EXPOSURE DURING PREGNANCY [None]
